FAERS Safety Report 23947196 (Version 1)
Quarter: 2024Q2

REPORT INFORMATION
  Report Type: Spontaneous
  Country: US (occurrence: US)
  Receive Date: 20240606
  Receipt Date: 20240606
  Transmission Date: 20240716
  Serious: No
  Sender: FDA-Public Use
  Company Number: US-MYCOVIA PHARMACEUTICALS, INC.-US-MYC-24-00003

PATIENT
  Sex: Female

DRUGS (2)
  1. VIVJOA [Suspect]
     Active Substance: OTESECONAZOLE
     Indication: Product used for unknown indication
     Dosage: UNK
     Route: 065
     Dates: start: 202305, end: 2023
  2. VIVJOA [Suspect]
     Active Substance: OTESECONAZOLE
     Dosage: UNK
     Route: 065

REACTIONS (1)
  - Off label use [Unknown]
